FAERS Safety Report 5053305-8 (Version None)
Quarter: 2006Q3

REPORT INFORMATION
  Report Type: 
  Country: None (occurrence: None)
  Receive Date: 20060712
  Receipt Date: 20060629
  Transmission Date: 20061208
  Serious: Yes (Hospitalization)
  Sender: FDA-Public Use
  Company Number: 2006054537

PATIENT
  Age: 21 Year
  Sex: Male
  Weight: 66 kg

DRUGS (4)
  1. SUDAFED 12 HOUR [Suspect]
     Indication: UPPER RESPIRATORY TRACT INFECTION
     Dosage: 60 MG 3 TIMES IN 1 DAY, ORAL
     Route: 048
  2. CEFAZOLIN SODIUM [Concomitant]
  3. ACETAMINOPHEN [Concomitant]
  4. SULFAMETHOXAZOLE [Concomitant]

REACTIONS (7)
  - ARTERIOSPASM CORONARY [None]
  - BETA HAEMOLYTIC STREPTOCOCCAL INFECTION [None]
  - CARDIAC PROCEDURE COMPLICATION [None]
  - MYOCARDIAL INFARCTION [None]
  - PHARYNGITIS [None]
  - SINUSITIS [None]
  - TONSILLITIS [None]
